FAERS Safety Report 25836868 (Version 2)
Quarter: 2025Q4

REPORT INFORMATION
  Report Type: Spontaneous
  Country: US (occurrence: US)
  Receive Date: 20250923
  Receipt Date: 20251030
  Transmission Date: 20260118
  Serious: Yes (Life-Threatening, Hospitalization)
  Sender: PFIZER
  Company Number: US-PFIZER INC-202500186510

PATIENT
  Age: 73 Year
  Sex: Female
  Weight: 48.073 kg

DRUGS (8)
  1. PAXLOVID [Suspect]
     Active Substance: NIRMATRELVIR\RITONAVIR
     Indication: COVID-19 treatment
     Dosage: [NIRMATRELVIR 300 MG]/[RITONAVIR 100 MG]; 2X/DAY
     Route: 048
     Dates: start: 20250917, end: 20250918
  2. LEVOTHYROXINE [Concomitant]
     Active Substance: LEVOTHYROXINE
     Indication: Hypothyroidism
     Dosage: 25 UG, DAILY
     Dates: start: 20250902
  3. ALBUTEROL [Concomitant]
     Active Substance: ALBUTEROL
     Indication: Wheezing
     Dosage: 2 PUFFS INHALER, 24 DEGREE, AS NEEDED
     Dates: start: 20250916
  4. ALVESCO [Concomitant]
     Active Substance: CICLESONIDE
     Indication: Wheezing
     Dosage: 160 MG, 2X/DAY (AEROSOL), 1 PUFF, INHALER
     Dates: start: 20250916
  5. HYDROXYUREA [Concomitant]
     Active Substance: HYDROXYUREA
     Indication: Platelet count increased
     Dosage: 500 MG, ALTERNATE DAY (EVERY OTHER DAY)
     Dates: end: 20250910
  6. VIT D [VITAMIN D NOS] [Concomitant]
     Indication: Vitamin D decreased
     Dosage: 4000 IU, DAILY
  7. VITAMIN B COMPLEX [Concomitant]
     Active Substance: CYANOCOBALAMIN\DEXPANTHENOL\NIACINAMIDE\PYRIDOXINE HYDROCHLORIDE\RIBOFLAVIN 5^-PHOSPHATE SODIUM\THIA
     Dosage: 1 TAB Q (EVERY) 2-3 DAYS
  8. FISH OIL [Concomitant]
     Active Substance: FISH OIL
     Dosage: UNK, DAILY (1 TAB)

REACTIONS (4)
  - Throat tightness [Recovered/Resolved]
  - Pharyngeal swelling [Recovered/Resolved]
  - Obstructive airways disorder [Recovered/Resolved]
  - Dyspnoea [Recovered/Resolved]

NARRATIVE: CASE EVENT DATE: 20250918
